FAERS Safety Report 18564095 (Version 1)
Quarter: 2020Q4

REPORT INFORMATION
  Report Type: Report from Study
  Country: AR (occurrence: AR)
  Receive Date: 20201201
  Receipt Date: 20201201
  Transmission Date: 20210114
  Serious: Yes (Hospitalization)
  Sender: FDA-Public Use
  Company Number: NVSC2020AR316903

PATIENT
  Age: 48 Year
  Sex: Male

DRUGS (1)
  1. EXFORGE [Suspect]
     Active Substance: AMLODIPINE BESYLATE\VALSARTAN
     Indication: HYPERTENSION
     Dosage: 1 DF, QD (5/160 MG)
     Route: 065

REACTIONS (3)
  - Speech disorder [Recovering/Resolving]
  - Blood pressure increased [Recovering/Resolving]
  - Cerebrovascular accident [Recovering/Resolving]

NARRATIVE: CASE EVENT DATE: 20200526
